FAERS Safety Report 8854789 (Version 2)
Quarter: 2012Q4

REPORT INFORMATION
  Report Type: 
  Country: DE (occurrence: DE)
  Receive Date: 20121023
  Receipt Date: 20121207
  Transmission Date: 20130627
  Serious: Yes (Other)
  Sender: FDA-Public Use
  Company Number: PHHY2012DE094512

PATIENT
  Sex: Male

DRUGS (2)
  1. RASILEZ [Suspect]
     Dosage: 300 mg, UNK
     Dates: start: 200910, end: 201209
  2. PROVAS [Suspect]

REACTIONS (5)
  - Atrial fibrillation [Unknown]
  - Loss of consciousness [Unknown]
  - Depressed level of consciousness [Unknown]
  - Fall [Unknown]
  - Hyperkalaemia [Recovered/Resolved]
